FAERS Safety Report 14825594 (Version 1)
Quarter: 2018Q2

REPORT INFORMATION
  Report Type: Spontaneous
  Country: HR (occurrence: HR)
  Receive Date: 20180430
  Receipt Date: 20180430
  Transmission Date: 20180711
  Serious: Yes (Other)
  Sender: FDA-Public Use
  Company Number: HR-ROCHE-2109242

PATIENT
  Age: 64 Year
  Sex: Male

DRUGS (4)
  1. CELLCEPT [Concomitant]
     Active Substance: MYCOPHENOLATE MOFETIL\MYCOPHENOLATE MOFETIL HYDROCHLORIDE
     Dosage: UNK
     Route: 065
  2. HARVONI [Suspect]
     Active Substance: LEDIPASVIR\SOFOSBUVIR
     Indication: CHRONIC HEPATITIS C
     Dosage: 1 DF, UNK
     Route: 065
     Dates: start: 20170413, end: 20170706
  3. NEORAL [Concomitant]
     Active Substance: CYCLOSPORINE
     Dosage: UNK
     Route: 065
  4. RIBAVIRIN. [Suspect]
     Active Substance: RIBAVIRIN
     Indication: CHRONIC HEPATITIS C
     Dosage: UNK
     Route: 065
     Dates: start: 20170413, end: 20170706

REACTIONS (2)
  - No adverse event [Unknown]
  - Treatment failure [Unknown]
